FAERS Safety Report 10128408 (Version 3)
Quarter: 2015Q3

REPORT INFORMATION
  Report Type: Report from Study
  Country: IT (occurrence: IT)
  Receive Date: 20140428
  Receipt Date: 20150713
  Transmission Date: 20151125
  Serious: Yes (Other)
  Sender: FDA-Public Use
  Company Number: IT-ROCHE-1386436

PATIENT

DRUGS (3)
  1. PACLITAXEL. [Suspect]
     Active Substance: PACLITAXEL
     Indication: NON-SMALL CELL LUNG CANCER
     Dosage: ON DAY 1
     Route: 065
  2. BEVACIZUMAB [Suspect]
     Active Substance: BEVACIZUMAB
     Indication: NON-SMALL CELL LUNG CANCER
     Dosage: ON DAY 1, FOR 6 CYCLES?MAINTENANCE BEVACIZUMAB (15 MG/KG ON DAY 1) EVERY 3 WEEKS
     Route: 065
  3. CARBOPLATIN. [Suspect]
     Active Substance: CARBOPLATIN
     Indication: NON-SMALL CELL LUNG CANCER
     Dosage: [AUC] 6 ON DAY 1
     Route: 065

REACTIONS (11)
  - Thrombocytopenia [Unknown]
  - Pulmonary toxicity [Unknown]
  - Anaemia [Unknown]
  - Febrile neutropenia [Unknown]
  - Alopecia [Unknown]
  - Hepatotoxicity [Unknown]
  - Decreased appetite [Unknown]
  - Hypertension [Unknown]
  - Neutropenia [Unknown]
  - Neurotoxicity [Unknown]
  - Proteinuria [Unknown]
